FAERS Safety Report 5615949-1 (Version None)
Quarter: 2008Q1

REPORT INFORMATION
  Report Type: 
  Country: None (occurrence: None)
  Receive Date: 20080206
  Receipt Date: 20080129
  Transmission Date: 20080703
  Serious: Yes (Hospitalization)
  Sender: FDA-Public Use
  Company Number: PHBS2007ES14374

PATIENT
  Age: 75 Year
  Sex: Female

DRUGS (6)
  1. TEGRETOL [Suspect]
     Indication: PERSONALITY DISORDER
     Dosage: 200 MG, QD
     Route: 048
     Dates: start: 20040601, end: 20070626
  2. DUPHALAC /NET/ [Concomitant]
  3. ESCITALOPRAM [Suspect]
     Indication: DEPRESSION
     Dosage: 20 MG, QD
     Route: 048
     Dates: start: 20001101
  4. RISPERIDONE [Suspect]
     Dosage: 2 MG, QD
     Route: 048
     Dates: start: 20060701
  5. DEPRAX [Suspect]
     Indication: DEPRESSION
     Dosage: 100 MG, QD
     Route: 048
     Dates: start: 20070501
  6. COAPROVEL [Suspect]
     Indication: HYPERTENSION
     Dosage: UNK, QD

REACTIONS (6)
  - AGITATION [None]
  - BLOOD SODIUM DECREASED [None]
  - DRUG INTERACTION [None]
  - INAPPROPRIATE ANTIDIURETIC HORMONE SECRETION [None]
  - RESTLESSNESS [None]
  - URINE SODIUM DECREASED [None]
